FAERS Safety Report 8816342 (Version 1)
Quarter: 2012Q4

REPORT INFORMATION
  Report Type: 
  Country: US (occurrence: None)
  Receive Date: 20120927
  Receipt Date: 20120927
  Transmission Date: 20130627
  Serious: No
  Sender: FDA-Public Use
  Company Number: None

PATIENT
  Sex: Male
  Weight: 52.2 kg

DRUGS (1)
  1. CAPECITABINE [Suspect]

REACTIONS (6)
  - Diarrhoea [None]
  - Decreased appetite [None]
  - Fatigue [None]
  - Gastrointestinal mucosal disorder [None]
  - Nausea [None]
  - Vomiting [None]
